FAERS Safety Report 25641408 (Version 2)
Quarter: 2025Q3

REPORT INFORMATION
  Report Type: Spontaneous
  Country: US (occurrence: US)
  Receive Date: 20250804
  Receipt Date: 20250905
  Transmission Date: 20251021
  Serious: Yes (Other)
  Sender: GLAUKOS
  Company Number: US-GLK-000665

PATIENT
  Sex: Male

DRUGS (1)
  1. IDOSE TR [Suspect]
     Active Substance: TRAVOPROST
     Indication: Product used for unknown indication
     Route: 047

REACTIONS (2)
  - Uveitis-glaucoma-hyphaema syndrome [Recovering/Resolving]
  - Device dislocation [Recovering/Resolving]
